FAERS Safety Report 12518563 (Version 3)
Quarter: 2016Q4

REPORT INFORMATION
  Report Type: Spontaneous
  Country: IT (occurrence: IT)
  Receive Date: 20160630
  Receipt Date: 20161014
  Transmission Date: 20170207
  Serious: Yes (Hospitalization, Other)
  Sender: FDA-Public Use
  Company Number: IT-GILEAD-2016-0221252

PATIENT
  Age: 66 Year
  Sex: Male

DRUGS (7)
  1. NITROGLICERINA [Concomitant]
     Active Substance: NITROGLYCERIN
  2. BRILIQUE [Concomitant]
     Active Substance: TICAGRELOR
  3. BISOPROLOL [Concomitant]
     Active Substance: BISOPROLOL
  4. RANEXA [Suspect]
     Active Substance: RANOLAZINE
     Indication: MYOCARDIAL ISCHAEMIA
     Dosage: UNK
     Route: 048
     Dates: start: 20160517
  5. CARDIOASPIRIN [Concomitant]
     Active Substance: ASPIRIN
  6. TORVAST [Concomitant]
     Active Substance: ATORVASTATIN
  7. LANSOX [Concomitant]
     Active Substance: LANSOPRAZOLE

REACTIONS (2)
  - Pancreatitis acute [Unknown]
  - Off label use [Unknown]

NARRATIVE: CASE EVENT DATE: 20160517
